FAERS Safety Report 15341138 (Version 1)
Quarter: 2018Q3

REPORT INFORMATION
  Report Type: Spontaneous
  Country: CA (occurrence: CA)
  Receive Date: 20180831
  Receipt Date: 20180831
  Transmission Date: 20181010
  Serious: Yes (Hospitalization, Other)
  Sender: FDA-Public Use
  Company Number: CA-GILEAD-2018-0359762

PATIENT
  Age: 63 Year
  Sex: Male

DRUGS (7)
  1. MARAVIROC [Concomitant]
     Active Substance: MARAVIROC
     Indication: HIV INFECTION
     Dosage: 300 UNK, BID
     Route: 065
     Dates: start: 201302
  2. ENFUVIRTIDE. [Concomitant]
     Active Substance: ENFUVIRTIDE
     Indication: HIV INFECTION
     Dosage: UNK
     Route: 065
     Dates: start: 201302, end: 201310
  3. DARUNAVIR W/RITONAVIR [Suspect]
     Active Substance: DARUNAVIR\RITONAVIR
     Indication: HIV INFECTION
     Dosage: UNK
     Route: 065
     Dates: end: 201302
  4. ETRAVIRINE [Suspect]
     Active Substance: ETRAVIRINE
     Indication: HIV INFECTION
     Dosage: UNK
     Route: 065
     Dates: end: 201302
  5. DOLUTEGRAVIR [Concomitant]
     Active Substance: DOLUTEGRAVIR
     Indication: HIV INFECTION
     Dosage: 50 UNKNOWN, BID
     Route: 065
     Dates: start: 201302
  6. RITONAVIR W/TIPRANAVIR [Concomitant]
     Active Substance: RITONAVIR\TIPRANAVIR
     Indication: HIV INFECTION
     Dosage: UNK
     Route: 065
     Dates: start: 201302
  7. TRUVADA [Suspect]
     Active Substance: EMTRICITABINE\TENOFOVIR DISOPROXIL FUMARATE
     Indication: HIV INFECTION
     Dosage: UNK
     Route: 065
     Dates: end: 201612

REACTIONS (10)
  - Non-Hodgkin^s lymphoma [Unknown]
  - Eye infection syphilitic [Recovered/Resolved with Sequelae]
  - Chlamydial infection [Unknown]
  - Clostridium difficile infection [Unknown]
  - Syphilis [Unknown]
  - Drug ineffective [Recovered/Resolved]
  - Febrile neutropenia [Unknown]
  - Gonorrhoea [Unknown]
  - Blood HIV RNA increased [Recovered/Resolved]
  - Gene mutation identification test positive [Unknown]

NARRATIVE: CASE EVENT DATE: 201301
